FAERS Safety Report 9354039 (Version 1)
Quarter: 2013Q2

REPORT INFORMATION
  Report Type: Spontaneous
  Country: FR (occurrence: FR)
  Receive Date: 20130618
  Receipt Date: 20130618
  Transmission Date: 20140414
  Serious: Yes (Other)
  Sender: FDA-Public Use
  Company Number: FR-TEVA-412917ISR

PATIENT
  Sex: Female

DRUGS (5)
  1. FUROSEMIDE TEVA 40 MG [Suspect]
     Indication: LUNG DISORDER
     Dosage: 1 OR 1.5 TABLET DAILY (AS NEEDED)
     Dates: end: 20130608
  2. OXYGEN [Concomitant]
  3. INSULIN [Concomitant]
  4. INSULIN [Concomitant]
  5. PLAVIX [Concomitant]

REACTIONS (4)
  - Acute respiratory failure [Recovering/Resolving]
  - Fatigue [Unknown]
  - Sleep disorder [Recovering/Resolving]
  - Nausea [Unknown]
